FAERS Safety Report 16771610 (Version 2)
Quarter: 2020Q2

REPORT INFORMATION
  Report Type: Report from Study
  Country: FR (occurrence: FR)
  Receive Date: 20190904
  Receipt Date: 20200505
  Transmission Date: 20200713
  Serious: Yes (Hospitalization)
  Sender: FDA-Public Use
  Company Number: FR-EMD SERONO-9113639

PATIENT
  Age: 61 Year
  Sex: Male
  Weight: 64 kg

DRUGS (8)
  1. PERINDOPRIL [Concomitant]
     Active Substance: PERINDOPRIL
     Indication: HYPERTENSION
     Route: 048
     Dates: start: 2009
  2. INNOHEP [Concomitant]
     Active Substance: TINZAPARIN SODIUM
     Indication: ACUTE CORONARY SYNDROME
     Route: 058
     Dates: start: 20190627
  3. PRAVASTATINE [Concomitant]
     Active Substance: PRAVASTATIN
     Indication: ACUTE CORONARY SYNDROME
     Route: 048
     Dates: start: 2009
  4. AMLOR [Concomitant]
     Active Substance: AMLODIPINE BESYLATE
     Indication: HYPERTENSION
     Route: 048
     Dates: start: 20190816
  5. REGORAFENIB. [Suspect]
     Active Substance: REGORAFENIB
     Indication: GASTRIC CANCER
     Route: 048
     Dates: start: 20190705, end: 20190822
  6. VERAPAMIL [Concomitant]
     Active Substance: VERAPAMIL HYDROCHLORIDE
     Indication: HYPERTENSION
     Route: 048
     Dates: start: 2009
  7. AVELUMAB [Suspect]
     Active Substance: AVELUMAB
     Indication: GASTRIC CANCER
     Route: 042
     Dates: start: 20190718, end: 20190816
  8. EMLA [Concomitant]
     Active Substance: LIDOCAINE\PRILOCAINE
     Indication: PAIN PROPHYLAXIS
     Route: 003
     Dates: start: 20190816, end: 20190820

REACTIONS (1)
  - Liver disorder [Recovered/Resolved]

NARRATIVE: CASE EVENT DATE: 20190822
